FAERS Safety Report 6046418-5 (Version None)
Quarter: 2009Q1

REPORT INFORMATION
  Report Type: 
  Country: None (occurrence: None)
  Receive Date: 20090122
  Receipt Date: 20090114
  Transmission Date: 20090719
  Serious: Yes (Other)
  Sender: FDA-Public Use
  Company Number: US-ASTRAZENECA-2009UW01375

PATIENT
  Age: 67 Year
  Sex: Female

DRUGS (1)
  1. SEROQUEL [Suspect]
     Indication: AFFECTIVE DISORDER
     Dosage: 25-50 MG
     Route: 048

REACTIONS (2)
  - FALL [None]
  - FRACTURE [None]
